FAERS Safety Report 18277426 (Version 1)
Quarter: 2020Q3

REPORT INFORMATION
  Report Type: Spontaneous
  Country: US (occurrence: US)
  Receive Date: 20200917
  Receipt Date: 20200917
  Transmission Date: 20201103
  Serious: No
  Sender: FDA-Public Use
  Company Number: None

PATIENT
  Age: 35 Year
  Sex: Male
  Weight: 99 kg

DRUGS (1)
  1. OXYCODONE [Suspect]
     Active Substance: OXYCODONE
     Indication: PAIN MANAGEMENT
     Route: 048
     Dates: start: 20200911, end: 20200912

REACTIONS (3)
  - Pharyngeal swelling [None]
  - Product substitution issue [None]
  - Mouth swelling [None]

NARRATIVE: CASE EVENT DATE: 20200912
